FAERS Safety Report 16594761 (Version 1)
Quarter: 2019Q3

REPORT INFORMATION
  Report Type: Other
  Country: US (occurrence: US)
  Receive Date: 20190718
  Receipt Date: 20190718
  Transmission Date: 20191004
  Serious: No
  Sender: FDA-Public Use
  Company Number: US-SWEDISH ORPHAN BIOVITRUM-2019US0302

PATIENT
  Sex: Female

DRUGS (11)
  1. ATORVASTATIN [Concomitant]
     Active Substance: ATORVASTATIN
  2. PREDNISONE. [Concomitant]
     Active Substance: PREDNISONE
  3. GARLIC EXTRACT [Concomitant]
     Active Substance: GARLIC
  4. ASPIRIN. [Concomitant]
     Active Substance: ASPIRIN
  5. VITAMIN D3 [Concomitant]
     Active Substance: CHOLECALCIFEROL
  6. CULTURELLE [Concomitant]
     Active Substance: LACTOBACILLUS RHAMNOSUS
  7. GLIMEPIRIDE. [Concomitant]
     Active Substance: GLIMEPIRIDE
  8. PREVAGEN [Concomitant]
     Active Substance: DIETARY SUPPLEMENT
  9. KINERET [Suspect]
     Active Substance: ANAKINRA
     Route: 058
     Dates: start: 20190124
  10. HYDROCHLOROQUINE [Concomitant]
     Active Substance: HYDROXYCHLOROQUINE SULFATE
  11. FOLIC ACID. [Concomitant]
     Active Substance: FOLIC ACID

REACTIONS (3)
  - Pain [Unknown]
  - Burning sensation [Unknown]
  - Injection site pain [Unknown]
